FAERS Safety Report 17131980 (Version 1)
Quarter: 2019Q4

REPORT INFORMATION
  Report Type: Spontaneous
  Country: IT (occurrence: IT)
  Receive Date: 20191209
  Receipt Date: 20191209
  Transmission Date: 20200122
  Serious: Yes (Hospitalization)
  Sender: FDA-Public Use
  Company Number: IT-SAMSUNG BIOEPIS-SB-2019-35814

PATIENT
  Age: 35 Year
  Sex: Male

DRUGS (2)
  1. DELTACORTENE [Concomitant]
     Active Substance: PREDNISONE
     Indication: PRODUCT USED FOR UNKNOWN INDICATION
     Route: 048
  2. FLIXABI [Suspect]
     Active Substance: INFLIXIMAB
     Indication: COLITIS ULCERATIVE
     Route: 042
     Dates: start: 20180709, end: 20190415

REACTIONS (2)
  - Drug ineffective [Not Recovered/Not Resolved]
  - Colitis ulcerative [Not Recovered/Not Resolved]
